FAERS Safety Report 13824166 (Version 2)
Quarter: 2017Q3

REPORT INFORMATION
  Report Type: Report from Study
  Country: US (occurrence: US)
  Receive Date: 20170802
  Receipt Date: 20170828
  Transmission Date: 20171127
  Serious: Yes (Hospitalization, Other)
  Sender: FDA-Public Use
  Company Number: US-GILEAD-2017-0286241

PATIENT
  Age: 50 Year
  Sex: Female

DRUGS (2)
  1. REVATIO [Concomitant]
     Active Substance: SILDENAFIL CITRATE
  2. AMBRISENTAN [Suspect]
     Active Substance: AMBRISENTAN
     Indication: PRODUCT USED FOR UNKNOWN INDICATION
     Dosage: 10 MG, QD
     Route: 065
     Dates: start: 20120615

REACTIONS (14)
  - Haemorrhage [Unknown]
  - Night sweats [Unknown]
  - Breast mass [Unknown]
  - Migraine [Unknown]
  - Raynaud^s phenomenon [Not Recovered/Not Resolved]
  - Abdominal pain upper [Unknown]
  - Vomiting [Unknown]
  - Swelling [Unknown]
  - Fatigue [Not Recovered/Not Resolved]
  - Tuberculosis [Not Recovered/Not Resolved]
  - Neck mass [Unknown]
  - Biopsy [Unknown]
  - Alopecia [Unknown]
  - Sjogren^s syndrome [Not Recovered/Not Resolved]
